FAERS Safety Report 16236836 (Version 2)
Quarter: 2019Q2

REPORT INFORMATION
  Report Type: Spontaneous
  Country: US (occurrence: US)
  Receive Date: 20190425
  Receipt Date: 20190513
  Transmission Date: 20190711
  Serious: Yes (Death)
  Sender: FDA-Public Use
  Company Number: US-TEVA-2019-US-1041319

PATIENT
  Age: 71 Year
  Sex: Male

DRUGS (2)
  1. SUNITINIB [Suspect]
     Active Substance: SUNITINIB
     Indication: RENAL CELL CARCINOMA STAGE IV
     Dosage: RECEIVED APPROXIMATELY THREE YEARS PRIOR TO CURRENT PRESENTATION
     Route: 065
  2. GEMCITABINE [Suspect]
     Active Substance: GEMCITABINE\GEMCITABINE HYDROCHLORIDE
     Indication: RENAL CELL CARCINOMA STAGE IV
     Route: 065

REACTIONS (2)
  - Acute kidney injury [Fatal]
  - Thrombotic microangiopathy [Fatal]
